FAERS Safety Report 10740254 (Version 3)
Quarter: 2015Q1

REPORT INFORMATION
  Report Type: Spontaneous
  Country: US (occurrence: US)
  Receive Date: 20150127
  Receipt Date: 20150304
  Transmission Date: 20150721
  Serious: Yes (Other)
  Sender: FDA-Public Use
  Company Number: US-RANBAXY-2015US-91785

PATIENT
  Age: 32 Year
  Sex: Female

DRUGS (1)
  1. ABSORICA [Suspect]
     Active Substance: ISOTRETINOIN
     Indication: PRODUCT USED FOR UNKNOWN INDICATION
     Dosage: 20 MG, QD
     Route: 065
     Dates: start: 20141104, end: 20150112

REACTIONS (3)
  - Exposure during pregnancy [Recovered/Resolved]
  - Abortion [Unknown]
  - Pregnancy with contraceptive device [None]

NARRATIVE: CASE EVENT DATE: 20141222
